FAERS Safety Report 11272730 (Version 1)
Quarter: 2015Q3

REPORT INFORMATION
  Report Type: Spontaneous
  Country: US (occurrence: None)
  Receive Date: 20150714
  Receipt Date: 20150714
  Transmission Date: 20151125
  Serious: No
  Sender: FDA-Public Use
  Company Number: None

PATIENT
  Age: 40 Year
  Sex: Female
  Weight: 73.03 kg

DRUGS (8)
  1. BUPROP [Concomitant]
     Active Substance: BUPROPION
  2. LOMOTRIGINE [Concomitant]
  3. ADVIL [Concomitant]
     Active Substance: IBUPROFEN
  4. CRESTOR [Concomitant]
     Active Substance: ROSUVASTATIN CALCIUM
  5. CLONAZEPAM. [Concomitant]
     Active Substance: CLONAZEPAM
  6. LO LOESTRIN FE [Concomitant]
     Active Substance: ETHINYL ESTRADIOL\NORETHINDRONE ACETATE
  7. ADDERALL [Suspect]
     Active Substance: AMPHETAMINE ASPARTATE\AMPHETAMINE SULFATE\DEXTROAMPHETAMINE SACCHARATE\DEXTROAMPHETAMINE SULFATE
     Indication: ATTENTION DEFICIT/HYPERACTIVITY DISORDER
     Dosage: 60 (2 PILLS PER DAY) TWICE DAILY --
     Dates: start: 20150601, end: 20150713
  8. MULTI VITAMIN [Concomitant]
     Active Substance: VITAMINS

REACTIONS (5)
  - Disturbance in attention [None]
  - Product substitution issue [None]
  - Weight increased [None]
  - Product formulation issue [None]
  - Product quality issue [None]
